FAERS Safety Report 20167051 (Version 2)
Quarter: 2022Q2

REPORT INFORMATION
  Report Type: Report from Study
  Country: KR (occurrence: KR)
  Receive Date: 20211209
  Receipt Date: 20220418
  Transmission Date: 20220721
  Serious: No
  Sender: FDA-Public Use
  Company Number: KR-BAYER-2021A264289

PATIENT
  Age: 62 Year
  Sex: Male
  Weight: 72.4 kg

DRUGS (4)
  1. LAROTRECTINIB [Suspect]
     Active Substance: LAROTRECTINIB
     Indication: Thyroid cancer
     Dosage: 10 ML, QD (100MG, BID)
     Route: 048
     Dates: start: 20211104, end: 20220330
  2. SYNTHROID [Concomitant]
     Active Substance: LEVOTHYROXINE SODIUM
     Indication: Thyroid cancer
     Dosage: 0.15 MG, QD
     Route: 048
     Dates: start: 20201228
  3. MAGNESIUM OXIDE [Concomitant]
     Active Substance: MAGNESIUM OXIDE
     Indication: Constipation
     Dosage: 1500 MG, QD
     Route: 048
     Dates: start: 20211118
  4. OXYCODONE HYDROCHLORIDE [Concomitant]
     Active Substance: OXYCODONE HYDROCHLORIDE
     Indication: Pain
     Dosage: 25 MG, QD
     Route: 048
     Dates: start: 20211118, end: 20211120

REACTIONS (2)
  - Amylase increased [Not Recovered/Not Resolved]
  - Dizziness [Recovered/Resolved]

NARRATIVE: CASE EVENT DATE: 20211118
